FAERS Safety Report 4943494-5 (Version None)
Quarter: 2006Q1

REPORT INFORMATION
  Report Type: 
  Country: None (occurrence: None)
  Receive Date: 20060309
  Receipt Date: 20060228
  Transmission Date: 20060701
  Serious: Yes (Other)
  Sender: FDA-Public Use
  Company Number: 2006-02-2018

PATIENT
  Sex: Male

DRUGS (4)
  1. TEMODAR [Suspect]
     Indication: GLIOBLASTOMA MULTIFORME
     Dosage: ORAL
     Route: 048
     Dates: start: 20060125, end: 20060221
  2. PHENYTOIN [Suspect]
     Indication: CONVULSION
     Dosage: 400-200 MG* ORAL
     Route: 048
     Dates: start: 20051027
  3. RADIATION THERAPY [Concomitant]
  4. GLIOBLASTOMA MULTIFORME [Concomitant]

REACTIONS (4)
  - ANTICONVULSANT DRUG LEVEL INCREASED [None]
  - DRUG INTERACTION [None]
  - LABORATORY TEST INTERFERENCE [None]
  - MUSCLE TWITCHING [None]
